FAERS Safety Report 8786030 (Version 2)
Quarter: 2015Q2

REPORT INFORMATION
  Report Type: Report from Study
  Country: US (occurrence: US)
  Receive Date: 20120914
  Receipt Date: 20150623
  Transmission Date: 20150821
  Serious: Yes (Death)
  Sender: FDA-Public Use
  Company Number: US-ROCHE-1126526

PATIENT
  Sex: Female

DRUGS (6)
  1. GEMZAR [Concomitant]
     Active Substance: GEMCITABINE HYDROCHLORIDE
     Route: 065
  2. DECADRON [Concomitant]
     Active Substance: DEXAMETHASONE
  3. ANZEMET [Concomitant]
     Active Substance: DOLASETRON MESYLATE
  4. AVASTIN [Suspect]
     Active Substance: BEVACIZUMAB
     Indication: PANCREATIC CARCINOMA
     Dosage: DOSE TAKEN ON 15/MAR/2004 AND 30/MAR/2004
     Route: 065
     Dates: start: 20040315
  5. TAXOTERE [Concomitant]
     Active Substance: DOCETAXEL
  6. CAMPTOSAR [Concomitant]
     Active Substance: IRINOTECAN HYDROCHLORIDE

REACTIONS (2)
  - Off label use [Unknown]
  - Death [Fatal]
